FAERS Safety Report 24920769 (Version 1)
Quarter: 2025Q1

REPORT INFORMATION
  Report Type: Spontaneous
  Country: IL (occurrence: IL)
  Receive Date: 20250204
  Receipt Date: 20250204
  Transmission Date: 20250409
  Serious: No
  Sender: EXELIXIS
  Company Number: IL-IPSEN Group, Research and Development-2024-03241

PATIENT
  Age: 15 Year
  Sex: Male
  Weight: 122 kg

DRUGS (1)
  1. CABOMETYX [Suspect]
     Active Substance: CABOZANTINIB S-MALATE
     Indication: Ewing^s sarcoma
     Dosage: 60MG A DAY
     Route: 065
     Dates: start: 202401

REACTIONS (3)
  - Irritability [Unknown]
  - Off label use [Unknown]
  - Off label use [Unknown]

NARRATIVE: CASE EVENT DATE: 20240101
